FAERS Safety Report 24767322 (Version 1)
Quarter: 2024Q4

REPORT INFORMATION
  Report Type: Spontaneous
  Country: US (occurrence: None)
  Receive Date: 20241220
  Receipt Date: 20241220
  Transmission Date: 20250115
  Serious: Yes (Death)
  Sender: Public
  Company Number: None

PATIENT
  Age: 6 Year
  Sex: Male
  Weight: 21.15 kg

DRUGS (1)
  1. SILDENAFIL [Suspect]
     Active Substance: SILDENAFIL
     Indication: Pulmonary hypertension
     Dosage: ?1 ML 3 TIMES A DAY JTUBE
     Route: 050
     Dates: start: 20200226, end: 20241220

REACTIONS (1)
  - Death [None]

NARRATIVE: CASE EVENT DATE: 20241220
